FAERS Safety Report 10424599 (Version 4)
Quarter: 2015Q3

REPORT INFORMATION
  Report Type: Report from Study
  Country: CO (occurrence: CO)
  Receive Date: 20140902
  Receipt Date: 20150708
  Transmission Date: 20151125
  Serious: Yes (Hospitalization, Other)
  Sender: FDA-Public Use
  Company Number: CO-ABBVIE-14K-036-1277361-00

PATIENT
  Age: 54 Year
  Sex: Female
  Weight: 48 kg

DRUGS (6)
  1. HUMIRA [Suspect]
     Active Substance: ADALIMUMAB
     Indication: CROHN^S DISEASE
     Route: 058
     Dates: start: 20100428
  2. HUMIRA [Suspect]
     Active Substance: ADALIMUMAB
     Route: 058
     Dates: end: 20150616
  3. ACETAMINOPHEN AND CODEINE [Concomitant]
     Active Substance: ACETAMINOPHEN\CODEINE PHOSPHATE
     Indication: PRODUCT USED FOR UNKNOWN INDICATION
  4. MESALAZINE [Concomitant]
     Active Substance: MESALAMINE
     Indication: PRODUCT USED FOR UNKNOWN INDICATION
  5. AZATHIOPRINE. [Concomitant]
     Active Substance: AZATHIOPRINE
     Indication: PRODUCT USED FOR UNKNOWN INDICATION
  6. LEVETIRACETAM. [Concomitant]
     Active Substance: LEVETIRACETAM
     Indication: PRODUCT USED FOR UNKNOWN INDICATION

REACTIONS (9)
  - Confusional state [Not Recovered/Not Resolved]
  - Paraesthesia [Unknown]
  - Headache [Unknown]
  - Seizure [Not Recovered/Not Resolved]
  - Syncope [Not Recovered/Not Resolved]
  - Somnolence [Not Recovered/Not Resolved]
  - Brain neoplasm malignant [Recovering/Resolving]
  - Paraesthesia [Recovering/Resolving]
  - Hemiplegia [Recovering/Resolving]

NARRATIVE: CASE EVENT DATE: 20140812
